FAERS Safety Report 20107571 (Version 1)
Quarter: 2021Q4

REPORT INFORMATION
  Report Type: Spontaneous
  Country: US (occurrence: None)
  Receive Date: 20211123
  Receipt Date: 20211123
  Transmission Date: 20220303
  Serious: Yes (Hospitalization)
  Sender: FDA-Public Use
  Company Number: None

PATIENT
  Age: 54 Year
  Sex: Female

DRUGS (4)
  1. HUMIRA [Suspect]
     Active Substance: ADALIMUMAB
     Indication: Rheumatoid arthritis
     Dosage: OTHER FREQUENCY : EVERY 14 DAYS;?
     Route: 058
     Dates: start: 20180724
  2. FOLIC ACID [Concomitant]
     Active Substance: FOLIC ACID
  3. Olmesa Medox [Concomitant]
  4. Metoprol Suc [Concomitant]

REACTIONS (3)
  - COVID-19 [None]
  - Therapy interrupted [None]
  - Hypertension [None]

NARRATIVE: CASE EVENT DATE: 20210901
